FAERS Safety Report 26142820 (Version 1)
Quarter: 2025Q4

REPORT INFORMATION
  Report Type: Spontaneous
  Country: US (occurrence: US)
  Receive Date: 20251211
  Receipt Date: 20251211
  Transmission Date: 20260117
  Serious: Yes (Death, Life-Threatening, Hospitalization)
  Sender: DR REDDYS
  Company Number: US-MLMSERVICE-20251126-PI728470-00034-1

PATIENT
  Age: 75 Year
  Sex: Male

DRUGS (3)
  1. AMIODARONE [Suspect]
     Active Substance: AMIODARONE
     Indication: Product used for unknown indication
     Dosage: CHRONIC AMIODARONE USE
     Route: 065
  2. METHIMAZOLE [Concomitant]
     Active Substance: METHIMAZOLE
     Indication: Hyperthyroidism
     Route: 065
  3. CARVEDILOL [Concomitant]
     Active Substance: CARVEDILOL
     Indication: Atrial fibrillation
     Route: 065

REACTIONS (3)
  - Pulmonary toxicity [Fatal]
  - Interstitial lung disease [Fatal]
  - Hyperthyroidism [Fatal]
